FAERS Safety Report 10133921 (Version 1)
Quarter: 2014Q2

REPORT INFORMATION
  Report Type: Spontaneous
  Country: US (occurrence: US)
  Receive Date: 20140428
  Receipt Date: 20140428
  Transmission Date: 20141212
  Serious: Yes (Other)
  Sender: FDA-Public Use
  Company Number: US-ASTELLAS-2013US011082

PATIENT
  Age: 70 Year
  Sex: Female

DRUGS (1)
  1. LEXISCAN [Suspect]
     Indication: CHEST PAIN
     Route: 042

REACTIONS (8)
  - Nodal rhythm [Recovered/Resolved]
  - Arrhythmia supraventricular [Recovered/Resolved]
  - Heart rate decreased [Recovered/Resolved]
  - Hyperhidrosis [Unknown]
  - Feeling abnormal [Unknown]
  - Blood pressure abnormal [Recovered/Resolved]
  - Chest pain [Unknown]
  - Nausea [Unknown]
